FAERS Safety Report 17170957 (Version 1)
Quarter: 2019Q4

REPORT INFORMATION
  Report Type: Spontaneous
  Country: JP (occurrence: JP)
  Receive Date: 20191218
  Receipt Date: 20191218
  Transmission Date: 20200122
  Serious: Yes (Hospitalization, Other)
  Sender: FDA-Public Use
  Company Number: NVSJ2019JP004662

PATIENT
  Sex: Male

DRUGS (1)
  1. VOTRIENT [Suspect]
     Active Substance: PAZOPANIB HYDROCHLORIDE
     Indication: RENAL CELL CARCINOMA
     Dosage: 600 MG,UNK
     Route: 048
     Dates: start: 20191105, end: 20191118

REACTIONS (3)
  - Hepatic function abnormal [Unknown]
  - Platelet count decreased [Unknown]
  - Malaise [Unknown]

NARRATIVE: CASE EVENT DATE: 20191112
